FAERS Safety Report 4951429-4 (Version None)
Quarter: 2006Q1

REPORT INFORMATION
  Report Type: 
  Country: None (occurrence: None)
  Receive Date: 20060323
  Receipt Date: 20060310
  Transmission Date: 20060701
  Serious: Yes (Life-Threatening, Congenital Anomaly)
  Sender: FDA-Public Use
  Company Number: FR-JNJFOC-20060302908

PATIENT
  Sex: Female

DRUGS (2)
  1. EPITOMAX [Suspect]
     Indication: DRUG USE FOR UNKNOWN INDICATION
  2. DEPAKENE [Suspect]
     Indication: DRUG USE FOR UNKNOWN INDICATION

REACTIONS (4)
  - CEREBELLAR HYPOPLASIA [None]
  - COARCTATION OF THE AORTA [None]
  - FOETAL VALPROATE SYNDROME [None]
  - HEART DISEASE CONGENITAL [None]
